FAERS Safety Report 7240272-1 (Version None)
Quarter: 2011Q1

REPORT INFORMATION
  Report Type: 
  Country: None (occurrence: None)
  Receive Date: 20110124
  Receipt Date: 20110111
  Transmission Date: 20110831
  Serious: Yes (Hospitalization)
  Sender: FDA-Public Use
  Company Number: PHHY2011US02847

PATIENT
  Age: 84 Year
  Sex: Female

DRUGS (3)
  1. METOPROLOL TARTRATE [Concomitant]
     Dosage: 25 MG, BID
  2. LIBRIUM [Concomitant]
     Indication: ANXIETY
  3. DIOVAN HCT [Suspect]
     Dosage: 100/12.5 MG ONE PER DAY

REACTIONS (3)
  - ANXIETY [None]
  - BLOOD PRESSURE INCREASED [None]
  - PALPITATIONS [None]
